FAERS Safety Report 15904215 (Version 1)
Quarter: 2019Q1

REPORT INFORMATION
  Report Type: Report from Study
  Country: BR (occurrence: BR)
  Receive Date: 20190204
  Receipt Date: 20190204
  Transmission Date: 20190417
  Serious: Yes (Hospitalization, Other)
  Sender: FDA-Public Use
  Company Number: BR-EMD SERONO-9069317

PATIENT
  Age: 63 Year
  Sex: Male

DRUGS (1)
  1. REBIF [Suspect]
     Active Substance: INTERFERON BETA-1A
     Indication: MULTIPLE SCLEROSIS
     Route: 058
     Dates: start: 20000901

REACTIONS (4)
  - Multiple sclerosis relapse [Recovered/Resolved]
  - Immunodeficiency [Recovered/Resolved]
  - Intervertebral disc protrusion [Recovered/Resolved]
  - Lumbar hernia [Recovered/Resolved]

NARRATIVE: CASE EVENT DATE: 2018
